FAERS Safety Report 12055151 (Version 1)
Quarter: 2016Q1

REPORT INFORMATION
  Report Type: Spontaneous
  Country: NO (occurrence: NO)
  Receive Date: 20160209
  Receipt Date: 20160209
  Transmission Date: 20160526
  Serious: Yes (Hospitalization)
  Sender: FDA-Public Use
  Company Number: PHHY2016NO014223

PATIENT
  Age: 35 Year
  Sex: Female

DRUGS (1)
  1. OCTREOTIDE. [Suspect]
     Active Substance: OCTREOTIDE
     Indication: HYPOGLYCAEMIA
     Dosage: UNK
     Route: 058
     Dates: start: 20150513, end: 20150513

REACTIONS (7)
  - Abdominal pain [Unknown]
  - Abdominal pain upper [Unknown]
  - Hyperventilation [Unknown]
  - Paraesthesia [Unknown]
  - Hepatic enzyme increased [Recovered/Resolved]
  - Paraesthesia oral [Unknown]
  - Nausea [Unknown]

NARRATIVE: CASE EVENT DATE: 20150513
